FAERS Safety Report 15501959 (Version 2)
Quarter: 2018Q4

REPORT INFORMATION
  Report Type: Spontaneous
  Country: US (occurrence: US)
  Receive Date: 20181015
  Receipt Date: 20181109
  Transmission Date: 20190205
  Serious: No
  Sender: FDA-Public Use
  Company Number: US-AMGEN-USASP2018131810

PATIENT

DRUGS (6)
  1. EPOGEN [Suspect]
     Active Substance: ERYTHROPOIETIN
     Dosage: UNK (M10 2ML MULTI-DOSE VIALS)
     Route: 065
  2. EPOGEN [Suspect]
     Active Substance: ERYTHROPOIETIN
     Dosage: UNK (M10 2ML MULTI-DOSE VIALS)
     Route: 065
  3. EPOGEN [Suspect]
     Active Substance: ERYTHROPOIETIN
     Dosage: UNK (M10 2ML MULTI-DOSE VIALS)
     Route: 065
  4. EPOGEN [Suspect]
     Active Substance: ERYTHROPOIETIN
     Dosage: UNK (M10 2ML MULTI-DOSE VIALS)
     Route: 065
  5. EPOGEN [Suspect]
     Active Substance: ERYTHROPOIETIN
     Dosage: UNK (M10 2ML MULTI-DOSE VIALS)
     Route: 065
  6. EPOGEN [Suspect]
     Active Substance: ERYTHROPOIETIN
     Indication: PRODUCT USED FOR UNKNOWN INDICATION
     Dosage: UNK (M10 2ML MULTI-DOSE VIALS)
     Route: 065

REACTIONS (2)
  - Product storage error [Unknown]
  - Intercepted product administration error [Unknown]

NARRATIVE: CASE EVENT DATE: 2018
